FAERS Safety Report 11230403 (Version 2)
Quarter: 2015Q3

REPORT INFORMATION
  Report Type: Spontaneous
  Country: US (occurrence: None)
  Receive Date: 20150629
  Receipt Date: 20150717
  Transmission Date: 20151125
  Serious: Yes (Disabling, Other)
  Sender: FDA-Public Use
  Company Number: 2015-11362

PATIENT
  Age: 85 Year
  Sex: Female

DRUGS (3)
  1. EYLEA [Suspect]
     Active Substance: AFLIBERCEPT
     Indication: AGE-RELATED MACULAR DEGENERATION
     Dosage: EVERY 4 WEEKS
     Route: 031
     Dates: start: 20130606, end: 20150504
  2. EYLEA [Suspect]
     Active Substance: AFLIBERCEPT
     Indication: CHOROIDAL NEOVASCULARISATION
     Dosage: EVERY 4 WEEKS
     Route: 031
     Dates: start: 20130606, end: 20150504
  3. PROLENSA [Concomitant]
     Active Substance: BROMFENAC SODIUM

REACTIONS (3)
  - Non-infectious endophthalmitis [None]
  - Blindness transient [None]
  - Blindness unilateral [None]

NARRATIVE: CASE EVENT DATE: 20150504
